FAERS Safety Report 12568228 (Version 1)
Quarter: 2016Q3

REPORT INFORMATION
  Report Type: Spontaneous
  Country: FR (occurrence: FR)
  Receive Date: 20160718
  Receipt Date: 20160718
  Transmission Date: 20161109
  Serious: Yes (Hospitalization, Other)
  Sender: FDA-Public Use
  Company Number: FR-ASTRAZENECA-2016SE75502

PATIENT
  Age: 73 Year
  Sex: Female

DRUGS (2)
  1. DEPAMIDE [Concomitant]
     Active Substance: VALPROMIDE
     Indication: BIPOLAR DISORDER
     Route: 048
     Dates: end: 201607
  2. XEROQUEL [Suspect]
     Active Substance: QUETIAPINE FUMARATE
     Indication: BIPOLAR DISORDER
     Route: 048
     Dates: end: 201607

REACTIONS (7)
  - Dysphagia [Unknown]
  - Atrial fibrillation [Unknown]
  - Acute pulmonary oedema [Unknown]
  - Pneumonia aspiration [Unknown]
  - Arrhythmia [Unknown]
  - Hypokalaemia [Unknown]
  - Condition aggravated [Unknown]

NARRATIVE: CASE EVENT DATE: 2016
